FAERS Safety Report 6843905-4 (Version None)
Quarter: 2010Q3

REPORT INFORMATION
  Report Type: 
  Country: None (occurrence: None)
  Receive Date: 20100715
  Receipt Date: 20100707
  Transmission Date: 20110219
  Serious: Yes (Disabling)
  Sender: FDA-Public Use
  Company Number: GB-ELI_LILLY_AND_COMPANY-GB201007001495

PATIENT
  Age: 74 Year
  Sex: Male
  Weight: 114 kg

DRUGS (4)
  1. BYETTA [Suspect]
     Indication: PROPHYLAXIS
     Dosage: 10 UG, UNK
     Route: 058
     Dates: start: 20090211, end: 20100630
  2. ASPIRIN [Concomitant]
     Indication: MYOCARDIAL ISCHAEMIA
     Dosage: 75 MG, UNK
     Route: 048
  3. INSULIN GLARGINE [Concomitant]
     Indication: DIABETES MELLITUS
     Dosage: 62 IU, UNK
     Route: 058
  4. METFORMIN HCL [Concomitant]
     Indication: DIABETES MELLITUS
     Dosage: 1 G, UNK
     Route: 048

REACTIONS (3)
  - JOINT STIFFNESS [None]
  - OEDEMA PERIPHERAL [None]
  - OFF LABEL USE [None]
